FAERS Safety Report 4495733-5 (Version None)
Quarter: 2004Q4

REPORT INFORMATION
  Report Type: 
  Country: None (occurrence: None)
  Receive Date: 20041104
  Receipt Date: 20041019
  Transmission Date: 20050328
  Serious: Yes (Hospitalization)
  Sender: FDA-Public Use
  Company Number: 206673

PATIENT
  Age: 42 Year
  Sex: Female

DRUGS (5)
  1. AVONEX [Suspect]
     Indication: MULTIPLE SCLEROSIS
     Dosage: 30 MCG QW IM
     Route: 030
     Dates: start: 20011218
  2. AVONEX [Suspect]
     Indication: MULTIPLE SCLEROSIS
     Dosage: 30 MCG QW IM
     Route: 030
  3. BACLOFEN [Concomitant]
  4. ZANAFLEX [Concomitant]
  5. XANAX [Concomitant]

REACTIONS (3)
  - COMA [None]
  - MEDICATION ERROR [None]
  - MULTIPLE DRUG OVERDOSE [None]
